FAERS Safety Report 8371244-1 (Version None)
Quarter: 2012Q2

REPORT INFORMATION
  Report Type: 
  Country: None (occurrence: None)
  Receive Date: 20120518
  Receipt Date: 20120508
  Transmission Date: 20120825
  Serious: Yes (Hospitalization)
  Sender: FDA-Public Use
  Company Number: BR-AMGEN-BRASP2012029979

PATIENT
  Age: 65 Year
  Sex: Female
  Weight: 71 kg

DRUGS (4)
  1. METFORMIN HYDROCHLORIDE [Concomitant]
     Indication: DIABETES MELLITUS
     Dosage: 850 MG, 2X/DAY
     Dates: start: 20100101
  2. ARAVA [Concomitant]
     Dosage: UNKNOWN DOSAGE, ONCE DAILY
  3. ENBREL [Suspect]
     Indication: RHEUMATOID ARTHRITIS
     Dosage: 50 MG, ONCE WEEKLY
     Route: 058
     Dates: start: 20111201
  4. LOSARTAN POTASSIUM [Concomitant]
     Indication: HYPERTENSION
     Dosage: 50 MG, 2X/DAY
     Dates: start: 20110101

REACTIONS (6)
  - PAIN IN EXTREMITY [None]
  - PLEURAL EFFUSION [None]
  - ARTHRALGIA [None]
  - INFLAMMATION [None]
  - VOCAL CORD DISORDER [None]
  - GAIT DISTURBANCE [None]
